FAERS Safety Report 7078620-8 (Version None)
Quarter: 2010Q4

REPORT INFORMATION
  Report Type: 
  Country: None (occurrence: None)
  Receive Date: 20101102
  Receipt Date: 20101026
  Transmission Date: 20110411
  Serious: Yes (Hospitalization, Other)
  Sender: FDA-Public Use
  Company Number: US-ELI_LILLY_AND_COMPANY-US201008004323

PATIENT
  Sex: Female
  Weight: 70.295 kg

DRUGS (16)
  1. BYETTA [Suspect]
     Indication: TYPE 2 DIABETES MELLITUS
     Dosage: 5 UG, 2/D
     Route: 058
     Dates: start: 20051101
  2. BYETTA [Suspect]
     Dosage: 10 UG, 2/D
     Route: 058
     Dates: start: 20080124
  3. ACTOPLUS MET [Concomitant]
     Indication: TYPE 2 DIABETES MELLITUS
     Dosage: UNK, 2/D
     Dates: start: 20100311, end: 20100816
  4. LANTUS                             /01483501/ [Concomitant]
     Indication: DIABETES MELLITUS
     Dosage: UNK, UNK
     Dates: start: 20080124, end: 20090817
  5. LISINOPRIL [Concomitant]
     Indication: HYPERTENSION
  6. CLONAZEPAM [Concomitant]
     Indication: STRESS
     Dosage: UNK, AS NEEDED
  7. ESTRADERM [Concomitant]
  8. PLAVIX [Concomitant]
     Dosage: 75 MG, DAILY (1/D)
  9. AVANDIA [Concomitant]
     Dates: end: 20080124
  10. AMARYL [Concomitant]
     Dosage: 4 MG, DAILY (1/D)
  11. ACTOS [Concomitant]
     Dates: start: 20080124
  12. ACTOS [Concomitant]
     Dates: start: 20100826
  13. METFORMIN [Concomitant]
     Dates: start: 20051101
  14. METFORMIN [Concomitant]
     Dates: start: 20100826
  15. LIPOFEN [Concomitant]
     Indication: HYPERLIPIDAEMIA
     Dosage: 150 MG, DAILY (1/D)
  16. CRESTOR [Concomitant]

REACTIONS (10)
  - BLOOD GLUCOSE INCREASED [None]
  - BLOOD PRESSURE INCREASED [None]
  - CAROTID ARTERY STENOSIS [None]
  - CORONARY ARTERY DISEASE [None]
  - DRUG DOSE OMISSION [None]
  - DRUG PRESCRIBING ERROR [None]
  - LETHARGY [None]
  - NAUSEA [None]
  - OFF LABEL USE [None]
  - STRESS [None]
